FAERS Safety Report 19766916 (Version 13)
Quarter: 2022Q3

REPORT INFORMATION
  Report Type: Report from Study
  Country: US (occurrence: US)
  Receive Date: 20210830
  Receipt Date: 20220905
  Transmission Date: 20221026
  Serious: Yes (Hospitalization, Other)
  Sender: FDA-Public Use
  Company Number: US-SHIRE-US201933018AA

PATIENT
  Sex: Female

DRUGS (2)
  1. HUMAN IMMUNOGLOBULIN G [Suspect]
     Active Substance: HUMAN IMMUNOGLOBULIN G
     Indication: Primary immunodeficiency syndrome
     Dosage: UNK
     Route: 065
  2. GAMMAGARD LIQUID [Suspect]
     Active Substance: HUMAN IMMUNOGLOBULIN G
     Indication: Primary immunodeficiency syndrome
     Dosage: UNK
     Route: 042

REACTIONS (18)
  - Pneumonia [Unknown]
  - COVID-19 [Unknown]
  - Oesophageal infection [Unknown]
  - Hepatic neoplasm [Unknown]
  - Spinal compression fracture [Unknown]
  - Sepsis [Unknown]
  - Kidney infection [Unknown]
  - Pulmonary mass [Unknown]
  - Fungal infection [Not Recovered/Not Resolved]
  - Pyrexia [Not Recovered/Not Resolved]
  - Infection [Unknown]
  - White blood cell count increased [Unknown]
  - Blood pressure increased [Not Recovered/Not Resolved]
  - Ill-defined disorder [Unknown]
  - Sinusitis [Unknown]
  - Bacterial infection [Not Recovered/Not Resolved]
  - Urinary tract infection [Unknown]
  - Malaise [Unknown]
